FAERS Safety Report 20998367 (Version 1)
Quarter: 2022Q3

REPORT INFORMATION
  Report Type: Spontaneous
  Country: PT (occurrence: PT)
  Receive Date: 20220623
  Receipt Date: 20220623
  Transmission Date: 20221027
  Serious: Yes (Other)
  Sender: FDA-Public Use
  Company Number: None

PATIENT
  Sex: Female

DRUGS (1)
  1. AMOXICILLIN [Suspect]
     Active Substance: AMOXICILLIN
     Indication: Product used for unknown indication
     Dosage: EPISODIO EM 2015 E OUTRO EM 2019
     Route: 065
     Dates: start: 2015

REACTIONS (2)
  - Eyelid oedema [Recovered/Resolved]
  - Rash pruritic [Recovered/Resolved]
